FAERS Safety Report 16488992 (Version 2)
Quarter: 2025Q3

REPORT INFORMATION
  Report Type: Spontaneous
  Country: US (occurrence: US)
  Receive Date: 20190628
  Receipt Date: 20250723
  Transmission Date: 20251020
  Serious: Yes (Life-Threatening, Hospitalization, Other)
  Sender: AUROBINDO
  Company Number: US-AUROBINDO-AUR-APL-2019-035846

PATIENT
  Age: 31 Year
  Sex: Male

DRUGS (3)
  1. LOPERAMIDE [Suspect]
     Active Substance: LOPERAMIDE
     Indication: Product used for unknown indication
     Dosage: 50 DOSAGE FORM, EVERY OTHER DAY
     Route: 048
  2. NALOXONE [Concomitant]
     Active Substance: NALOXONE
     Indication: Product used for unknown indication
     Route: 065
  3. CARVEDILOL [Concomitant]
     Active Substance: CARVEDILOL
     Indication: Product used for unknown indication
     Dosage: 3.125 MILLIGRAM, TWO TIMES A DAY
     Route: 065

REACTIONS (9)
  - Unresponsive to stimuli [Recovered/Resolved]
  - Somnolence [Recovered/Resolved]
  - Electrocardiogram QT prolonged [Recovering/Resolving]
  - Ventricular tachycardia [Unknown]
  - Brugada syndrome [Recovering/Resolving]
  - Drug abuse [Unknown]
  - Toxicity to various agents [Unknown]
  - Hyperhidrosis [Unknown]
  - Electrocardiogram QRS complex prolonged [Recovering/Resolving]
